FAERS Safety Report 9197718 (Version 2)
Quarter: 2013Q3

REPORT INFORMATION
  Report Type: Spontaneous
  Country: US (occurrence: US)
  Receive Date: 20130328
  Receipt Date: 20130725
  Transmission Date: 20140515
  Serious: Yes (Other)
  Sender: FDA-Public Use
  Company Number: US-BAYER-2013-035485

PATIENT
  Age: 28 Year
  Sex: Female

DRUGS (2)
  1. YASMIN [Suspect]
  2. OCELLA [Suspect]
     Dosage: UNK
     Dates: start: 200909

REACTIONS (5)
  - Deep vein thrombosis [Recovered/Resolved]
  - Thrombophlebitis superficial [Recovered/Resolved]
  - Injury [None]
  - Pain [None]
  - Pain [Recovered/Resolved]
